FAERS Safety Report 19058112 (Version 2)
Quarter: 2021Q2

REPORT INFORMATION
  Report Type: Spontaneous
  Country: US (occurrence: US)
  Receive Date: 20210324
  Receipt Date: 20210603
  Transmission Date: 20210717
  Serious: Yes (Hospitalization)
  Sender: FDA-Public Use
  Company Number: US-ELI_LILLY_AND_COMPANY-US202103009951

PATIENT
  Age: 64 Year
  Sex: Female
  Weight: 110 kg

DRUGS (1)
  1. BAMLANIVIMAB 700MG [Suspect]
     Active Substance: BAMLANIVIMAB
     Indication: COVID-19
     Dosage: 700 MG, SINGLE
     Route: 065
     Dates: start: 202103, end: 202103

REACTIONS (8)
  - Blood pressure increased [Unknown]
  - Haemolysis [Unknown]
  - Fibrin D dimer increased [Unknown]
  - Pneumonia [Unknown]
  - Sinus tachycardia [Unknown]
  - Oxygen saturation decreased [Unknown]
  - Aspartate aminotransferase increased [Unknown]
  - Lung opacity [Unknown]

NARRATIVE: CASE EVENT DATE: 202103
